FAERS Safety Report 6826732-3 (Version None)
Quarter: 2010Q3

REPORT INFORMATION
  Report Type: 
  Country: None (occurrence: None)
  Receive Date: 20100709
  Receipt Date: 20100702
  Transmission Date: 20110219
  Serious: Yes (Hospitalization)
  Sender: FDA-Public Use
  Company Number: GB-TEVA-233785ISR

PATIENT
  Age: 73 Year
  Sex: Male

DRUGS (2)
  1. LANSOPRAZOLE [Suspect]
     Dates: start: 20100212, end: 20100310
  2. RANOLAZINE [Suspect]
     Indication: ANGINA PECTORIS
     Route: 048
     Dates: start: 20100212, end: 20100301

REACTIONS (3)
  - LIVER FUNCTION TEST ABNORMAL [None]
  - MALAISE [None]
  - VASCULITIC RASH [None]
